FAERS Safety Report 5074476-3 (Version None)
Quarter: 2006Q3

REPORT INFORMATION
  Report Type: 
  Country: None (occurrence: None)
  Receive Date: 20060803
  Receipt Date: 20060726
  Transmission Date: 20061208
  Serious: Yes (Other)
  Sender: FDA-Public Use
  Company Number: HQWYE420427JUL06

PATIENT
  Age: 51 Year
  Sex: Female

DRUGS (1)
  1. CEFSPAN (CEFIXIME, TABLET) [Suspect]
     Dosage: ORAL
     Route: 048
     Dates: start: 20000501, end: 20000501

REACTIONS (3)
  - CATARACT [None]
  - OCULOMUCOCUTANEOUS SYNDROME [None]
  - OESOPHAGEAL ULCER [None]
